FAERS Safety Report 8828183 (Version 2)
Quarter: 2012Q4

REPORT INFORMATION
  Report Type: 
  Country: US (occurrence: US)
  Receive Date: 20121005
  Receipt Date: 20121108
  Transmission Date: 20130627
  Serious: Yes (Other)
  Sender: FDA-Public Use
  Company Number: US-PFIZER INC-2012244296

PATIENT
  Sex: Male

DRUGS (8)
  1. GABAPENTIN [Suspect]
     Indication: ARTHRITIS
     Dosage: 300 mg, as needed
  2. GABAPENTIN [Suspect]
     Indication: FIBROMYALGIA
  3. WELLBUTRIN [Concomitant]
     Dosage: UNK
  4. EFFEXOR [Concomitant]
     Dosage: UNK
  5. MELOXICAM [Concomitant]
     Dosage: UNK
  6. UROXATRAL [Concomitant]
     Dosage: UNK
  7. OMEPRAZOLE [Concomitant]
     Dosage: UNK
  8. TRAMADOL [Concomitant]
     Dosage: UNK, as needed

REACTIONS (4)
  - Prostatomegaly [Unknown]
  - Somnolence [Unknown]
  - Pollakiuria [Unknown]
  - Dizziness [Unknown]
